FAERS Safety Report 5036573-8 (Version None)
Quarter: 2006Q2

REPORT INFORMATION
  Report Type: 
  Country: None (occurrence: None)
  Receive Date: 20060623
  Receipt Date: 20060612
  Transmission Date: 20061013
  Serious: Yes (Hospitalization)
  Sender: FDA-Public Use
  Company Number: 2006075553

PATIENT
  Age: 60 Year
  Sex: Female

DRUGS (1)
  1. HALCION [Suspect]
     Indication: ILL-DEFINED DISORDER
     Dosage: 0.25 MG (0.25 MG, EVERY TWO WEEKS), ORAL
     Route: 048

REACTIONS (1)
  - OVERDOSE [None]
